FAERS Safety Report 4936927-1 (Version None)
Quarter: 2006Q1

REPORT INFORMATION
  Report Type: 
  Country: None (occurrence: None)
  Receive Date: 20060307
  Receipt Date: 20041019
  Transmission Date: 20060701
  Serious: Yes (Hospitalization, Disabling)
  Sender: FDA-Public Use
  Company Number: US-MERCK-0410USA02813

PATIENT
  Age: 33 Year
  Sex: Male
  Weight: 95 kg

DRUGS (8)
  1. VIOXX [Suspect]
     Indication: TENDONITIS
     Route: 048
     Dates: start: 20000923, end: 20000901
  2. VIOXX [Suspect]
     Route: 048
     Dates: start: 20000901, end: 20020819
  3. VIOXX [Suspect]
     Indication: PERIARTHRITIS
     Route: 048
     Dates: start: 20000923, end: 20000901
  4. VIOXX [Suspect]
     Route: 048
     Dates: start: 20000901, end: 20020819
  5. CLARITIN-D [Concomitant]
     Route: 065
  6. NASONEX [Concomitant]
     Route: 065
  7. FLONASE [Concomitant]
     Route: 065
  8. ECOTRIN [Suspect]
     Indication: CEREBROVASCULAR ACCIDENT PROPHYLAXIS
     Route: 065

REACTIONS (7)
  - BASILAR MIGRAINE [None]
  - CEREBRAL ISCHAEMIA [None]
  - CEREBROVASCULAR ACCIDENT [None]
  - OTITIS MEDIA [None]
  - ROSACEA [None]
  - STOMACH DISCOMFORT [None]
  - TENSION HEADACHE [None]
